FAERS Safety Report 9846685 (Version 1)
Quarter: 2013Q4

REPORT INFORMATION
  Report Type: Spontaneous
  Country: US (occurrence: None)
  Receive Date: 20131224
  Receipt Date: 20131224
  Transmission Date: 20140711
  Serious: Yes (Other)
  Sender: FDA-Public Use
  Company Number: PHEH2013US022303

PATIENT
  Age: 62 Year
  Sex: Female
  Weight: 60.8 kg

DRUGS (10)
  1. GILENYA (FINGOLIMOD) CAPSULE, 0.5 MG [Suspect]
     Indication: MULTIPLE SCLEROSIS
     Route: 048
     Dates: start: 20110718, end: 20130505
  2. AMPYRA [Suspect]
     Route: 048
     Dates: start: 20100901
  3. ALEVE (NAPROXEN SODIUM) [Concomitant]
  4. CYMBALTA (DULOXETINE HYDROCHLORIDE) [Concomitant]
  5. TOVIAZ (FESOTERODINE FUMARATE) [Concomitant]
  6. BUPAP (BUTALBITAL, PARACETAMOL) [Concomitant]
  7. LUNESTA (ESZOPICLONE) [Concomitant]
  8. DUEXIS (FAMOTIDINE, IBUPROFEN) [Concomitant]
  9. TIZANIDINE (TIZANIDINE) [Concomitant]
  10. ATHLETES FOOT (TOLNAFTATE) [Concomitant]

REACTIONS (5)
  - Herpes zoster [None]
  - Lymphopenia [None]
  - Skin discolouration [None]
  - Pain [None]
  - Rash pruritic [None]
